FAERS Safety Report 23951071 (Version 2)
Quarter: 2024Q2

REPORT INFORMATION
  Report Type: Spontaneous
  Country: DE (occurrence: DE)
  Receive Date: 20240607
  Receipt Date: 20240614
  Transmission Date: 20240715
  Serious: Yes (Other)
  Sender: FDA-Public Use
  Company Number: None

PATIENT
  Age: 79 Year
  Sex: Female

DRUGS (13)
  1. EBASTINE [Suspect]
     Active Substance: EBASTINE
     Indication: Urticaria
     Dosage: 5 MILLIGRAM, QD (0-0-1)
     Route: 048
     Dates: start: 20240515, end: 20240517
  2. EBASTINE [Suspect]
     Active Substance: EBASTINE
     Indication: Pruritus
  3. EBASTINE [Suspect]
     Active Substance: EBASTINE
     Indication: Dermatitis allergic
  4. ATORVASTATIN [Concomitant]
     Active Substance: ATORVASTATIN
     Dosage: 0-0-1
  5. BROMAZEPAM [Concomitant]
     Active Substance: BROMAZEPAM
     Dosage: B.B. 1/4
  6. MOLSIDOMIN STADA [Concomitant]
     Dosage: UNK, N.A.
  7. SPASMEX [PHLOROGLUCINOL] [Concomitant]
     Dosage: 15 MILLIGRAM, UNTIL 3X1
  8. BENSERAZIDE\LEVODOPA [Concomitant]
     Active Substance: BENSERAZIDE\LEVODOPA
     Dosage: UNK, N.A.
  9. BISOPROLOL [Concomitant]
     Active Substance: BISOPROLOL\BISOPROLOL FUMARATE
     Dosage: UNK, N.A.
  10. ESCITALEX [Concomitant]
     Dosage: UNK, N.A.
  11. BROTIZOLAM [Concomitant]
     Active Substance: BROTIZOLAM
     Dosage: WAS NEW AT THE TIME
  12. ASPIRIN [Concomitant]
     Active Substance: ASPIRIN
     Dosage: 1-0-0 (100 1A-PHARMA)
  13. BENSERAZIDE\LEVODOPA [Concomitant]
     Active Substance: BENSERAZIDE\LEVODOPA
     Dosage: UNK, N.A.

REACTIONS (3)
  - Altered state of consciousness [Recovered/Resolved]
  - Somnolence [Recovered/Resolved]
  - Loss of personal independence in daily activities [Recovered/Resolved]

NARRATIVE: CASE EVENT DATE: 20240518
